FAERS Safety Report 21978105 (Version 1)
Quarter: 2023Q1

REPORT INFORMATION
  Report Type: Spontaneous
  Country: BR (occurrence: BR)
  Receive Date: 20230210
  Receipt Date: 20230210
  Transmission Date: 20230418
  Serious: Yes (Other)
  Sender: FDA-Public Use
  Company Number: BR-TORRENT-00005907

PATIENT
  Age: 89 Year
  Sex: Male
  Weight: 80 kg

DRUGS (6)
  1. ROSUVASTATIN CALCIUM [Suspect]
     Active Substance: ROSUVASTATIN CALCIUM
     Indication: Arrhythmia
     Dosage: 1 TABLET AFTER DINNER
     Route: 048
     Dates: start: 20230124
  2. AMIODARONE HYDRODRATE [Concomitant]
     Indication: Arrhythmia
     Dosage: 1 TABLET IN THE MORNING
     Route: 048
     Dates: start: 2021
  3. EDOXABAN TOSYLATE [Concomitant]
     Active Substance: EDOXABAN TOSYLATE
     Indication: Arrhythmia
     Dosage: 1 TABLET IN THE MORNING
     Route: 048
     Dates: start: 2021
  4. METOPROLOL SUCCINATE [Concomitant]
     Active Substance: METOPROLOL SUCCINATE
     Indication: Arrhythmia
     Dosage: 1 TABLET IN THE MORNING
     Route: 048
     Dates: start: 20230124
  5. MONOCORDIL [Concomitant]
     Active Substance: ISOSORBIDE MONONITRATE
     Indication: Arrhythmia
     Dosage: 1 TABLET EVERY 12 HOURS
     Route: 048
     Dates: start: 2021
  6. RIVOTRIL [Concomitant]
     Active Substance: CLONAZEPAM
     Indication: Insomnia
     Dosage: UNKNOWN
     Route: 048
     Dates: start: 202211

REACTIONS (2)
  - Choking [Not Recovered/Not Resolved]
  - Product substitution issue [Unknown]

NARRATIVE: CASE EVENT DATE: 20230126
